FAERS Safety Report 16297224 (Version 2)
Quarter: 2019Q2

REPORT INFORMATION
  Report Type: Spontaneous
  Country: DE (occurrence: DE)
  Receive Date: 20190510
  Receipt Date: 20190613
  Transmission Date: 20190711
  Serious: Yes (Other)
  Sender: FDA-Public Use
  Company Number: DE-DRREDDYS-GER/GER/19/0109947

PATIENT
  Age: 37 Year
  Sex: Female
  Weight: 49 kg

DRUGS (1)
  1. CIPROFLOXACIN. [Suspect]
     Active Substance: CIPROFLOXACIN
     Indication: PRODUCT USED FOR UNKNOWN INDICATION
     Route: 048
     Dates: start: 20170701, end: 20170707

REACTIONS (27)
  - Renal vein compression [Recovered/Resolved with Sequelae]
  - Mast cell activation syndrome [Recovered/Resolved with Sequelae]
  - Autoimmune thyroiditis [Recovered/Resolved with Sequelae]
  - Idiopathic intracranial hypertension [Unknown]
  - May-Thurner syndrome [Recovered/Resolved with Sequelae]
  - Intracranial hypotension [Unknown]
  - Nervous system disorder [Unknown]
  - Fibromyalgia [Unknown]
  - Malabsorption [Unknown]
  - Tremor [Recovered/Resolved with Sequelae]
  - Hyperpathia [Unknown]
  - Neurotransmitter level altered [Unknown]
  - Gene mutation [Not Recovered/Not Resolved]
  - Metabolic disorder [Not Recovered/Not Resolved]
  - Small fibre neuropathy [Unknown]
  - Irregular sleep wake rhythm disorder [Unknown]
  - Hepatic enzyme abnormal [Recovered/Resolved with Sequelae]
  - Coeliac artery compression syndrome [Recovered/Resolved with Sequelae]
  - Hormone level abnormal [Recovered/Resolved with Sequelae]
  - Pancreatitis [Unknown]
  - Food allergy [Unknown]
  - Sjogren^s syndrome [Recovered/Resolved with Sequelae]
  - Brain compression [Recovered/Resolved with Sequelae]
  - Superior mesenteric artery syndrome [Unknown]
  - Weight decreased [Unknown]
  - Mineral deficiency [Recovered/Resolved with Sequelae]
  - Chronic fatigue syndrome [Unknown]

NARRATIVE: CASE EVENT DATE: 201706
